FAERS Safety Report 18688672 (Version 4)
Quarter: 2021Q2

REPORT INFORMATION
  Report Type: Spontaneous
  Country: RU (occurrence: RU)
  Receive Date: 20201231
  Receipt Date: 20210522
  Transmission Date: 20210717
  Serious: Yes (Other)
  Sender: FDA-Public Use
  Company Number: NVSC2020RU202674

PATIENT
  Sex: Female

DRUGS (6)
  1. TAMOXIFEN [Suspect]
     Active Substance: TAMOXIFEN
     Indication: HORMONE THERAPY
     Dosage: 20 MG, QD
     Route: 065
     Dates: start: 201703
  2. PALBOCICLIB [Suspect]
     Active Substance: PALBOCICLIB
     Dosage: 125 MG (FROM THE 1ST TO THE 21ST DAY, THEN A 7?DAY BREAK)
     Route: 065
     Dates: start: 201812, end: 202003
  3. FULVESTRANT. [Suspect]
     Active Substance: FULVESTRANT
     Indication: PRODUCT USED FOR UNKNOWN INDICATION
     Dosage: 500 MG (2 TIMES A MONTH DURING FIRST MONTH, THEN ONCE A MONTH)
     Route: 065
     Dates: start: 201812, end: 202003
  4. PALBOCICLIB [Suspect]
     Active Substance: PALBOCICLIB
     Indication: PRODUCT USED FOR UNKNOWN INDICATION
     Dosage: 5 DAYS A WEEK FOR 3 WEEKS, THEN A 7?DAY BREAK)
     Route: 065
     Dates: start: 201806
  5. TAMOXIFEN [Suspect]
     Active Substance: TAMOXIFEN
     Dosage: 20 MG, QD
     Route: 065
     Dates: start: 201710
  6. RIBOCICLIB. [Suspect]
     Active Substance: RIBOCICLIB
     Indication: PRODUCT USED FOR UNKNOWN INDICATION
     Dosage: 400 MG (REDUCED DOSE BY 1 LEVEL)
     Route: 065

REACTIONS (18)
  - Oedema [Unknown]
  - Disease progression [Unknown]
  - Thyroid mass [Unknown]
  - Dizziness [Unknown]
  - Sleep disorder [Unknown]
  - Leukopenia [Unknown]
  - Condition aggravated [Unknown]
  - Memory impairment [Unknown]
  - Asthenia [Unknown]
  - Adenocarcinoma [Unknown]
  - Brain injury [Unknown]
  - Brain oedema [Unknown]
  - Neutropenia [Unknown]
  - Metastases to lymph nodes [Unknown]
  - Metastasis [Unknown]
  - Papillary thyroid cancer [Unknown]
  - Nausea [Unknown]
  - Headache [Unknown]

NARRATIVE: CASE EVENT DATE: 20171206
